FAERS Safety Report 7286427-1 (Version None)
Quarter: 2011Q1

REPORT INFORMATION
  Report Type: 
  Country: None (occurrence: None)
  Receive Date: 20110210
  Receipt Date: 20110127
  Transmission Date: 20110831
  Serious: Yes (Hospitalization)
  Sender: FDA-Public Use
  Company Number: GB-MYLANLABS-2011S1001825

PATIENT
  Age: 36 Year
  Sex: Female

DRUGS (8)
  1. GABAPENTIN [Suspect]
     Indication: HEADACHE
  2. DIAZEPAM [Concomitant]
     Indication: PRODUCT USED FOR UNKNOWN INDICATION
  3. DEXAMETHASONE [Concomitant]
     Indication: PRODUCT USED FOR UNKNOWN INDICATION
  4. DICLOFENAC SODIUM [Concomitant]
     Indication: MIGRAINE
  5. PROPRANOLOL [Concomitant]
     Indication: PRODUCT USED FOR UNKNOWN INDICATION
  6. SUMATRIPTAN [Concomitant]
     Indication: PRODUCT USED FOR UNKNOWN INDICATION
  7. INDOMETHACIN [Suspect]
     Indication: HEADACHE
  8. TRAMADOL HCL [Concomitant]
     Indication: MIGRAINE

REACTIONS (1)
  - CEREBRAL VASOCONSTRICTION [None]
